FAERS Safety Report 6445908-0 (Version None)
Quarter: 2009Q4

REPORT INFORMATION
  Report Type: 
  Country: None (occurrence: None)
  Receive Date: 20091119
  Receipt Date: 20081110
  Transmission Date: 20100525
  Serious: No
  Sender: FDA-Public Use
  Company Number: A0756252A

PATIENT
  Age: 54 Year
  Sex: Female

DRUGS (2)
  1. BUPROPION HCL [Suspect]
     Indication: DEPRESSION
     Dosage: 100MG TWICE PER DAY
     Route: 048
     Dates: start: 20081031, end: 20081110
  2. XANAX [Concomitant]
     Indication: ANXIETY

REACTIONS (7)
  - BURNING SENSATION [None]
  - DECREASED APPETITE [None]
  - DRY MOUTH [None]
  - HYPERSENSITIVITY [None]
  - HYPOAESTHESIA ORAL [None]
  - LIP SWELLING [None]
  - PARAESTHESIA ORAL [None]
